FAERS Safety Report 4815931-8 (Version None)
Quarter: 2005Q4

REPORT INFORMATION
  Report Type: 
  Country: None (occurrence: None)
  Receive Date: 20051031
  Receipt Date: 20050422
  Transmission Date: 20060501
  Serious: Yes (Death, Hospitalization)
  Sender: FDA-Public Use
  Company Number: IT-BRISTOL-MYERS SQUIBB COMPANY-12956868

PATIENT
  Age: 54 Year
  Sex: Female

DRUGS (19)
  1. ERBITUX [Suspect]
     Indication: COLORECTAL CANCER METASTATIC
     Route: 041
     Dates: start: 20050221, end: 20050329
  2. IRINOTECAN HCL [Suspect]
     Indication: COLORECTAL CANCER METASTATIC
     Route: 042
     Dates: start: 20041116
  3. FLUOROURACIL [Suspect]
     Indication: COLORECTAL CANCER METASTATIC
     Route: 042
     Dates: start: 20041116
  4. CALCIUM + VITAMIN D [Concomitant]
     Dates: start: 20040701
  5. CHLORPHENAMINE [Concomitant]
     Route: 042
  6. CIMETIDINE [Concomitant]
     Route: 042
  7. DEXAMETHASONE [Concomitant]
     Dates: start: 20050331
  8. DEXCHLORPHENIRAMINE [Concomitant]
     Route: 048
  9. FENTANYL [Concomitant]
     Dates: start: 20040701
  10. HYDROCORTISONE [Concomitant]
     Route: 042
  11. KETOPROFEN [Concomitant]
     Dates: start: 20040201
  12. LACTOBACILLUS ACIDOPHILUS [Concomitant]
  13. LANSOPRAZOLE [Concomitant]
     Dates: start: 20040101
  14. MORPHINE [Concomitant]
     Dates: start: 20040901
  15. NADROPARINE [Concomitant]
     Dates: start: 20040501
  16. PREDNISONE [Concomitant]
     Route: 048
  17. RANITIDINE [Concomitant]
     Route: 048
  18. SCOPOLAMINE [Concomitant]
  19. TROPISETRON [Concomitant]
     Dates: start: 20040201

REACTIONS (8)
  - ASTHENIA [None]
  - DYSPNOEA [None]
  - ESCHERICHIA URINARY TRACT INFECTION [None]
  - HEART RATE INCREASED [None]
  - METASTASIS [None]
  - PRURITUS [None]
  - TOXIC EPIDERMAL NECROLYSIS [None]
  - URINARY TRACT INFECTION STAPHYLOCOCCAL [None]
